FAERS Safety Report 15413700 (Version 2)
Quarter: 2018Q3

REPORT INFORMATION
  Report Type: Report from Study
  Country: CZ (occurrence: CZ)
  Receive Date: 20180921
  Receipt Date: 20180926
  Transmission Date: 20181010
  Serious: Yes (Hospitalization)
  Sender: FDA-Public Use
  Company Number: CZ-EISAI MEDICAL RESEARCH-EC-2018-045186

PATIENT
  Age: 73 Year
  Sex: Male
  Weight: 77.4 kg

DRUGS (14)
  1. RILMENIDIN [Concomitant]
     Active Substance: RILMENIDINE
  2. PURINOL [Concomitant]
     Active Substance: ALLOPURINOL
  3. EVEROLIMUS. [Suspect]
     Active Substance: EVEROLIMUS
     Route: 048
     Dates: start: 20180920
  4. LENVATINIB [Suspect]
     Active Substance: LENVATINIB
     Route: 048
     Dates: start: 20180920
  5. THEOPHYLLINUM [Concomitant]
  6. EVEROLIMUS. [Suspect]
     Active Substance: EVEROLIMUS
     Indication: CLEAR CELL RENAL CELL CARCINOMA
     Route: 048
     Dates: start: 20180814, end: 20180913
  7. NEBIVOLOL. [Concomitant]
     Active Substance: NEBIVOLOL
  8. RHEFLUIN [Concomitant]
  9. FENTANYLUM [Concomitant]
  10. LENVATINIB [Suspect]
     Active Substance: LENVATINIB
     Indication: CLEAR CELL RENAL CELL CARCINOMA
     Route: 048
     Dates: start: 20180814, end: 20180913
  11. FINPROS [Concomitant]
  12. ANOPYRIN [Concomitant]
     Active Substance: ASPIRIN
  13. KYLOTAN [Concomitant]
  14. TRAJENTA [Concomitant]
     Active Substance: LINAGLIPTIN

REACTIONS (2)
  - Decreased appetite [Recovered/Resolved]
  - Dehydration [Recovered/Resolved]

NARRATIVE: CASE EVENT DATE: 20180913
